FAERS Safety Report 13382961 (Version 1)
Quarter: 2017Q1

REPORT INFORMATION
  Report Type: Spontaneous
  Country: GB (occurrence: GB)
  Receive Date: 20170329
  Receipt Date: 20170329
  Transmission Date: 20170429
  Serious: Yes (Other)
  Sender: FDA-Public Use
  Company Number: GB-SEBELA IRELAND LIMITED-2017SEB00067

PATIENT
  Age: 72 Year
  Sex: Female

DRUGS (3)
  1. ITRACONAZOLE. [Suspect]
     Active Substance: ITRACONAZOLE
     Indication: BRONCHOPULMONARY ASPERGILLOSIS
     Dosage: 200 MG, 1X/DAY
  2. SALBUTAMOL [Concomitant]
     Active Substance: ALBUTEROL
  3. SERETIDE [Suspect]
     Active Substance: FLUTICASONE PROPIONATE\SALMETEROL XINAFOATE
     Dosage: 1 DOSAGE UNITS, 2X/DAY

REACTIONS (2)
  - Secondary adrenocortical insufficiency [Recovering/Resolving]
  - Drug interaction [Recovering/Resolving]
